FAERS Safety Report 18722406 (Version 1)
Quarter: 2021Q1

REPORT INFORMATION
  Report Type: Spontaneous
  Country: BE (occurrence: BE)
  Receive Date: 20210111
  Receipt Date: 20210111
  Transmission Date: 20210419
  Serious: Yes (Hospitalization, Other)
  Sender: FDA-Public Use
  Company Number: BE-TEVA-2021-BE-1867213

PATIENT
  Age: 29 Year
  Sex: Male

DRUGS (2)
  1. VINCRISTINE [Suspect]
     Active Substance: VINCRISTINE
     Indication: ACUTE LYMPHOCYTIC LEUKAEMIA
     Route: 065
  2. POLYETHYLENE GLYCOL [MACROGOL] [Suspect]
     Active Substance: POLYETHYLENE GLYCOLS
     Indication: INTESTINAL PSEUDO-OBSTRUCTION
     Route: 048

REACTIONS (2)
  - Intestinal pseudo-obstruction [Unknown]
  - Drug ineffective [Unknown]
